APPROVED DRUG PRODUCT: ENALAPRIL MALEATE
Active Ingredient: ENALAPRIL MALEATE
Strength: 5MG
Dosage Form/Route: TABLET;ORAL
Application: A213273 | Product #002 | TE Code: AB
Applicant: PRINSTON PHARMACEUTICAL INC
Approved: Jul 7, 2022 | RLD: No | RS: No | Type: RX